FAERS Safety Report 9409711 (Version 2)
Quarter: 2013Q3

REPORT INFORMATION
  Report Type: Report from Study
  Country: US (occurrence: US)
  Receive Date: 20130719
  Receipt Date: 20130802
  Transmission Date: 20140515
  Serious: Yes (Death, Hospitalization)
  Sender: FDA-Public Use
  Company Number: PHEH2013US015166

PATIENT
  Sex: Male

DRUGS (4)
  1. EXJADE [Suspect]
     Indication: SICKLE CELL ANAEMIA
     Dosage: 5 DF, ONCE A DAY
     Route: 048
  2. EXJADE [Suspect]
     Indication: IRON OVERLOAD
     Dosage: 2000 MG, UNK
     Route: 048
     Dates: start: 2005, end: 2011
  3. EXJADE [Suspect]
     Dosage: 2000 MG, UNK
     Route: 048
     Dates: start: 201302, end: 201306
  4. FERRIPROX [Suspect]
     Indication: IRON OVERLOAD
     Dosage: 1500 MG, TID
     Route: 048
     Dates: start: 201209, end: 201306

REACTIONS (6)
  - Multi-organ failure [Fatal]
  - Mental disorder [Unknown]
  - Coagulopathy [Unknown]
  - Hepatic failure [Unknown]
  - Renal failure acute [Unknown]
  - Ejection fraction decreased [Unknown]
